FAERS Safety Report 8388758 (Version 6)
Quarter: 2013Q1

REPORT INFORMATION
  Report Type: Spontaneous
  Country: US (occurrence: US)
  Receive Date: 20120203
  Receipt Date: 20130207
  Transmission Date: 20140127
  Serious: Yes (Life-Threatening, Congenital Anomaly, Other)
  Sender: FDA-Public Use
  Company Number: US-PFIZER INC-2012026217

PATIENT
  Sex: Male
  Weight: 3.6 kg

DRUGS (10)
  1. ZOLOFT [Suspect]
     Dosage: 50 MG, UNK
     Route: 064
     Dates: start: 20051220, end: 200602
  2. PRENATAL VITAMINS [Concomitant]
     Dosage: UNK
     Route: 064
  3. MONISTAT 3 [Concomitant]
     Dosage: UNK
     Route: 064
  4. COLACE [Concomitant]
     Dosage: UNK
     Route: 064
  5. VICODIN [Concomitant]
     Dosage: UNK
     Route: 064
  6. HYDROCODONE W/ACETAMINOPHEN [Concomitant]
     Dosage: UNK
     Route: 064
  7. DOC-Q-LACE [Concomitant]
     Dosage: UNK
     Route: 064
  8. LIDOCAINE [Concomitant]
     Dosage: UNK
     Route: 064
  9. TYLENOL [Concomitant]
     Dosage: UNK
     Route: 064
  10. TUMS [Concomitant]
     Dosage: UNK
     Route: 064

REACTIONS (10)
  - Maternal exposure timing unspecified [Unknown]
  - Heart disease congenital [Unknown]
  - Limb deformity [Not Recovered/Not Resolved]
  - Talipes [Not Recovered/Not Resolved]
  - Congenital anomaly [Unknown]
  - Limb malformation [Unknown]
  - Limb malformation [Unknown]
  - Limb malformation [Unknown]
  - Developmental hip dysplasia [Unknown]
  - Jaundice neonatal [Unknown]
